FAERS Safety Report 15984036 (Version 1)
Quarter: 2019Q1

REPORT INFORMATION
  Report Type: Spontaneous
  Country: US (occurrence: US)
  Receive Date: 20190219
  Receipt Date: 20190219
  Transmission Date: 20190418
  Serious: Yes (Other)
  Sender: FDA-Public Use
  Company Number: None

PATIENT
  Age: 65 Month
  Sex: Female
  Weight: 49.5 kg

DRUGS (5)
  1. TARCEVA [Suspect]
     Active Substance: ERLOTINIB HYDROCHLORIDE
     Indication: LUNG NEOPLASM MALIGNANT
     Route: 048
     Dates: start: 20180605
  2. PREDNISONE. [Concomitant]
     Active Substance: PREDNISONE
  3. TAGRISSO [Concomitant]
     Active Substance: OSIMERTINIB
  4. ASPIRIN ADULT LOW DOSE [Concomitant]
     Active Substance: ASPIRIN
  5. FLUDROCORTISONE ACETATE. [Concomitant]
     Active Substance: FLUDROCORTISONE ACETATE

REACTIONS (1)
  - Disease progression [None]
